FAERS Safety Report 16831581 (Version 1)
Quarter: 2019Q3

REPORT INFORMATION
  Report Type: Spontaneous
  Country: SE (occurrence: SE)
  Receive Date: 20190920
  Receipt Date: 20190920
  Transmission Date: 20191005
  Serious: Yes (Death, Life-Threatening, Hospitalization, Other)
  Sender: FDA-Public Use
  Company Number: SE-ACCORD-155222

PATIENT
  Age: 73 Year
  Sex: Female

DRUGS (6)
  1. ERYTHROMYCIN. [Interacting]
     Active Substance: ERYTHROMYCIN
     Indication: LOWER RESPIRATORY TRACT INFECTION
  2. ACETYLSALICYLIC ACID [Concomitant]
     Active Substance: ASPIRIN
     Indication: CORONARY ARTERY DISEASE
  3. ESCITALOPRAM [Interacting]
     Active Substance: ESCITALOPRAM OXALATE
     Indication: DEPRESSION
  4. VENLAFAXINE/VENLAFAXINE HYDROCHLORIDE [Interacting]
     Active Substance: VENLAFAXINE HYDROCHLORIDE
     Indication: DEPRESSION
  5. ESCITALOPRAM [Suspect]
     Active Substance: ESCITALOPRAM OXALATE
     Indication: DEPRESSION
     Dosage: INCREASED TO ITS CURRENT DOSE 3 MONTHS AGO
  6. FUROSEMIDE. [Concomitant]
     Active Substance: FUROSEMIDE
     Indication: HYPERTENSION

REACTIONS (7)
  - Ventricular fibrillation [Fatal]
  - Myocardial infarction [Fatal]
  - Cardiac arrest [Fatal]
  - Drug interaction [Fatal]
  - Renal failure [Unknown]
  - Serotonin syndrome [Fatal]
  - Myeloma cast nephropathy [Fatal]
